FAERS Safety Report 7056047-2 (Version None)
Quarter: 2010Q4

REPORT INFORMATION
  Report Type: 
  Country: None (occurrence: None)
  Receive Date: 20101021
  Receipt Date: 20101013
  Transmission Date: 20110411
  Serious: Yes (Hospitalization)
  Sender: FDA-Public Use
  Company Number: B0679402A

PATIENT
  Age: 51 Year
  Sex: Male

DRUGS (1)
  1. REQUIP [Suspect]
     Indication: PARKINSON'S DISEASE
     Dosage: 1MG THREE TIMES PER DAY
     Route: 048

REACTIONS (2)
  - LOSS OF CONSCIOUSNESS [None]
  - PALPITATIONS [None]
